FAERS Safety Report 13400110 (Version 1)
Quarter: 2017Q2

REPORT INFORMATION
  Report Type: Spontaneous
  Country: US (occurrence: US)
  Receive Date: 20170404
  Receipt Date: 20170404
  Transmission Date: 20170830
  Serious: Yes (Death)
  Sender: FDA-Public Use
  Company Number: None

PATIENT
  Age: 75 Year
  Sex: Female

DRUGS (1)
  1. JAKAFI [Suspect]
     Active Substance: RUXOLITINIB
     Indication: MYELOPROLIFERATIVE NEOPLASM
     Dosage: 10/2017 - 3/2017 10MG BID PO
     Route: 048
     Dates: end: 201703

REACTIONS (7)
  - International normalised ratio increased [None]
  - Cholestasis [None]
  - Extramedullary haemopoiesis [None]
  - Blood bilirubin increased [None]
  - Thrombosis mesenteric vessel [None]
  - Abdominal discomfort [None]
  - Ascites [None]
